FAERS Safety Report 23712545 (Version 2)
Quarter: 2024Q2

REPORT INFORMATION
  Report Type: Report from Study
  Country: US (occurrence: US)
  Receive Date: 20240405
  Receipt Date: 20240430
  Transmission Date: 20240716
  Serious: Yes (Life-Threatening, Other)
  Sender: FDA-Public Use
  Company Number: US-ARGENX-2024-ARGX-US002188

PATIENT

DRUGS (24)
  1. VYVGART [Suspect]
     Active Substance: EFGARTIGIMOD ALFA-FCAB
     Indication: Myasthenia gravis
     Dosage: 85 G, DAY 1 Q4WEEKS
     Route: 042
     Dates: start: 20240212
  2. VYVGART [Suspect]
     Active Substance: EFGARTIGIMOD ALFA-FCAB
     Dosage: 80 G, DAY 2, Q4WEEKS
     Route: 042
     Dates: start: 20240212
  3. MESTINON [Suspect]
     Active Substance: PYRIDOSTIGMINE BROMIDE
     Indication: Myasthenia gravis
     Dosage: 60 MG, TID
     Route: 065
     Dates: start: 20221118
  4. PREDNISONE [Suspect]
     Active Substance: PREDNISONE
     Indication: Myasthenia gravis
     Dosage: 20 MG, 2/WEEK
     Route: 065
  5. GAMUNEX-C [Concomitant]
     Active Substance: HUMAN IMMUNOGLOBULIN G
     Indication: Product used for unknown indication
     Dosage: CYCLE OF TWO 8-8HR CONSECUTIVE DAYS
     Route: 042
  6. IRON [Concomitant]
     Active Substance: IRON
     Indication: Product used for unknown indication
     Dosage: 325 MG, QOD
     Route: 065
  7. MIRTAZAPINE [Concomitant]
     Active Substance: MIRTAZAPINE
     Indication: Sleep disorder
     Dosage: 15 MG, BID
     Route: 065
     Dates: start: 20230508
  8. MIRTAZAPINE [Concomitant]
     Active Substance: MIRTAZAPINE
     Indication: Depression
  9. MYCOPHENOLIC ACID [Concomitant]
     Active Substance: MYCOPHENOLIC ACID
     Indication: Myasthenia gravis
     Dosage: 500 MG, BID
     Route: 065
     Dates: start: 20230524
  10. ROSUVASTATIN [Concomitant]
     Active Substance: ROSUVASTATIN
     Indication: Blood cholesterol decreased
     Dosage: 5 MG, DAILY
     Route: 065
     Dates: start: 20220207
  11. CITALOPRAM [Concomitant]
     Active Substance: CITALOPRAM\CITALOPRAM HYDROBROMIDE
     Indication: Depression
     Dosage: 10 MG, DAILY
     Route: 065
     Dates: start: 20230517
  12. FUROSEMIDE [Concomitant]
     Active Substance: FUROSEMIDE
     Indication: Oedema
     Dosage: 20 MG, DAILY
     Route: 065
     Dates: start: 20210325
  13. MELATONIN [Concomitant]
     Active Substance: MELATONIN
     Indication: Sleep disorder
     Dosage: 10 MG, DAILY, PERIODICALLY
     Route: 065
  14. MINERALS\VITAMINS [Concomitant]
     Active Substance: MINERALS\VITAMINS
     Indication: Product used for unknown indication
     Dosage: 1, DAILY
     Route: 065
  15. VITAMIN A [Concomitant]
     Active Substance: VITAMIN A
     Indication: Product used for unknown indication
     Dosage: 2400 UG, DAILY
     Route: 065
  16. VITAMIN B6 [Concomitant]
     Active Substance: PYRIDOXINE HYDROCHLORIDE
     Indication: Product used for unknown indication
     Dosage: 100 MG, 1 A DAY SCATTERED ACROSS THE WEEK
     Route: 065
  17. VITAMIN B12 [Concomitant]
     Active Substance: CYANOCOBALAMIN
     Indication: Product used for unknown indication
     Dosage: 1000 UG, DAILY
     Route: 065
  18. VITAMIN C [Concomitant]
     Active Substance: ASCORBIC ACID
     Indication: Product used for unknown indication
     Dosage: 250 MG,1 A DAY SCATTERED ACROSS THE WEEK
     Route: 065
  19. VITAMIN K+D [Concomitant]
     Indication: Product used for unknown indication
     Dosage: K 90MCG + D 125MCG, DAILY
     Route: 065
  20. ZINC [Concomitant]
     Active Substance: PYRITHIONE ZINC\ZINC\ZINC CHLORIDE
     Indication: Product used for unknown indication
     Dosage: 30 MG, DAILY
     Route: 065
  21. BORON [Concomitant]
     Active Substance: BORON
     Indication: Product used for unknown indication
     Dosage: 3 MG
     Route: 065
  22. CALCIUM [Concomitant]
     Active Substance: CALCIUM
     Indication: Product used for unknown indication
     Dosage: 600 MG
     Route: 065
  23. CURCUMIN TURMERIC [Concomitant]
     Indication: Product used for unknown indication
     Dosage: 500 MG
     Route: 065
  24. ASPIRIN [Concomitant]
     Active Substance: ASPIRIN
     Indication: Product used for unknown indication
     Dosage: 325 MG
     Route: 065

REACTIONS (17)
  - Sleep apnoea syndrome [Unknown]
  - Depression suicidal [Unknown]
  - Deep vein thrombosis [Unknown]
  - Myasthenia gravis [Unknown]
  - Fall [Unknown]
  - Obesity [Unknown]
  - Chest discomfort [Unknown]
  - Food allergy [Unknown]
  - Brain fog [Unknown]
  - Mood swings [Unknown]
  - Urinary incontinence [Unknown]
  - Photophobia [Unknown]
  - Temperature intolerance [Unknown]
  - Loss of personal independence in daily activities [Unknown]
  - Diarrhoea [Unknown]
  - Inappropriate schedule of product administration [Unknown]
  - Drug ineffective [Unknown]
